FAERS Safety Report 10228100 (Version 4)
Quarter: 2020Q3

REPORT INFORMATION
  Report Type: Report from Study
  Country: GB (occurrence: GB)
  Receive Date: 20140610
  Receipt Date: 20200928
  Transmission Date: 20201102
  Serious: Yes (Other)
  Sender: FDA-Public Use
  Company Number: PHHY2014GB070235

PATIENT
  Age: 67 Year
  Sex: Female
  Weight: 63.8 kg

DRUGS (1)
  1. OMNITROPE [Suspect]
     Active Substance: SOMATROPIN
     Indication: GROWTH HORMONE DEFICIENCY
     Dosage: 0.05 MG, QD
     Route: 058
     Dates: start: 20130213, end: 20131014

REACTIONS (3)
  - Lipoma [Recovered/Resolved]
  - Large intestine polyp [Recovered/Resolved]
  - Disturbance in attention [Not Recovered/Not Resolved]

NARRATIVE: CASE EVENT DATE: 20131014
